FAERS Safety Report 9718188 (Version 1)
Quarter: 2013Q4

REPORT INFORMATION
  Report Type: Spontaneous
  Country: DE (occurrence: DE)
  Receive Date: 20131127
  Receipt Date: 20131127
  Transmission Date: 20140711
  Serious: Yes (Hospitalization, Other)
  Sender: FDA-Public Use
  Company Number: DE-ELI_LILLY_AND_COMPANY-DE201311005759

PATIENT
  Age: 0 None
  Sex: 0
  Weight: 2.98 kg

DRUGS (4)
  1. LIPROLOG LISPRO [Suspect]
     Indication: TYPE 1 DIABETES MELLITUS
     Dosage: UNK
     Route: 064
     Dates: end: 20130605
  2. SERTRALINE [Suspect]
     Indication: DEPRESSION
     Dosage: 150 MG, QD
     Route: 064
     Dates: end: 20130605
  3. LANTUS [Suspect]
     Indication: TYPE 1 DIABETES MELLITUS
     Dosage: UNK
     Route: 064
     Dates: end: 20130605
  4. L-THYROXIN [Suspect]
     Indication: HYPOTHYROIDISM
     Dosage: 150 UG, QD
     Route: 064
     Dates: end: 20130605

REACTIONS (7)
  - Neonatal respiratory distress syndrome [Recovered/Resolved]
  - Hypoglycaemia neonatal [Recovered/Resolved]
  - Foetal heart rate deceleration abnormality [Unknown]
  - Infection [Unknown]
  - Premature baby [Recovering/Resolving]
  - Hyperbilirubinaemia neonatal [Recovered/Resolved]
  - Foetal exposure during pregnancy [Recovered/Resolved]
